FAERS Safety Report 24845099 (Version 1)
Quarter: 2025Q1

REPORT INFORMATION
  Report Type: Spontaneous
  Country: CN (occurrence: CN)
  Receive Date: 20250115
  Receipt Date: 20250115
  Transmission Date: 20250409
  Serious: Yes (Hospitalization)
  Sender: BAYER HEALTHCARE PHARMACEUTICALS INC.
  Company Number: CN-BAYER-2025A006035

PATIENT
  Age: 73 Year
  Sex: Female
  Weight: 49 kg

DRUGS (1)
  1. AVELOX [Suspect]
     Active Substance: MOXIFLOXACIN HYDROCHLORIDE
     Indication: Anti-infective therapy
     Dosage: 0.4 G, QD
     Route: 048
     Dates: start: 20241220, end: 20241224

REACTIONS (9)
  - Rash erythematous [Recovering/Resolving]
  - Blister [Recovering/Resolving]
  - Pruritus [Recovering/Resolving]
  - Respiratory rate increased [None]
  - Blood pressure diastolic increased [None]
  - Scratch [None]
  - Breath sounds abnormal [None]
  - Rales [None]
  - Skin erosion [Recovering/Resolving]

NARRATIVE: CASE EVENT DATE: 20250102
